FAERS Safety Report 8905545 (Version 2)
Quarter: 2012Q4

REPORT INFORMATION
  Report Type: 
  Country: FI (occurrence: FI)
  Receive Date: 20121113
  Receipt Date: 20121123
  Transmission Date: 20130627
  Serious: Yes (Other)
  Sender: FDA-Public Use
  Company Number: FI-PFIZER INC-2012270524

PATIENT
  Sex: Female

DRUGS (2)
  1. LYRICA [Suspect]
     Dosage: 75 mg, single
     Dates: start: 201210, end: 201210
  2. CEFUROXIME [Suspect]
     Dosage: UNK
     Dates: start: 201210, end: 201210

REACTIONS (4)
  - Hypersensitivity [Unknown]
  - Skin tightness [Recovered/Resolved]
  - Erythema [Recovered/Resolved]
  - Swelling face [Unknown]
